FAERS Safety Report 5075371-6 (Version None)
Quarter: 2006Q3

REPORT INFORMATION
  Report Type: 
  Country: None (occurrence: None)
  Receive Date: 20060804
  Receipt Date: 20060724
  Transmission Date: 20061208
  Serious: Yes (Hospitalization)
  Sender: FDA-Public Use
  Company Number: 2006091567

PATIENT
  Age: 51 Year
  Sex: Female

DRUGS (11)
  1. LINEZOLID [Suspect]
     Indication: FUNGAL INFECTION
     Dosage: 1200 MG (600 MG,2 IN 1 D), ORAL
     Route: 048
     Dates: start: 20060518, end: 20060608
  2. LINEZOLID [Suspect]
     Indication: STAPHYLOCOCCAL INFECTION
     Dosage: 1200 MG (600 MG,2 IN 1 D), ORAL
     Route: 048
     Dates: start: 20060518, end: 20060608
  3. RILMENIDINE [Concomitant]
  4. NICARDIPINE [Concomitant]
  5. FUROSEMIDE [Concomitant]
  6. ZINC GLUCONATE [Concomitant]
  7. FLUINDIONE [Concomitant]
  8. PERINDOPRIL ERUMINE [Concomitant]
  9. HYDROXYZINE HYDROCHLORIDE [Concomitant]
  10. INSULIN [Concomitant]
  11. ADRAFINIL [Concomitant]

REACTIONS (3)
  - ANAEMIA [None]
  - CONDITION AGGRAVATED [None]
  - INTERNATIONAL NORMALISED RATIO INCREASED [None]
